FAERS Safety Report 10935209 (Version 2)
Quarter: 2015Q2

REPORT INFORMATION
  Report Type: Spontaneous
  Country: US (occurrence: US)
  Receive Date: 20150320
  Receipt Date: 20150526
  Transmission Date: 20150821
  Serious: No
  Sender: FDA-Public Use
  Company Number: US-JNJFOC-20121012804

PATIENT
  Age: 65 Year
  Sex: Female

DRUGS (1)
  1. TERCONAZOLE. [Suspect]
     Active Substance: TERCONAZOLE
     Indication: VULVOVAGINAL PRURITUS
     Dosage: 0.8 %
     Route: 067
     Dates: start: 20121018

REACTIONS (3)
  - Drug ineffective [Not Recovered/Not Resolved]
  - Vulvovaginal pruritus [Not Recovered/Not Resolved]
  - Product packaging issue [Unknown]

NARRATIVE: CASE EVENT DATE: 20121018
